FAERS Safety Report 13295861 (Version 1)
Quarter: 2017Q1

REPORT INFORMATION
  Report Type: Report from Study
  Country: US (occurrence: US)
  Receive Date: 20170303
  Receipt Date: 20170303
  Transmission Date: 20170428
  Serious: Yes (Other)
  Sender: FDA-Public Use
  Company Number: US-JAZZ-2017-US-000248

PATIENT
  Sex: Female

DRUGS (39)
  1. XYREM [Suspect]
     Active Substance: SODIUM OXYBATE
     Indication: SLEEP DISORDER
     Dosage: 2.25 G, BID
     Route: 048
     Dates: start: 201312, end: 2014
  2. NORVASC [Concomitant]
     Active Substance: AMLODIPINE BESYLATE
  3. ULTRAM [Concomitant]
     Active Substance: TRAMADOL HYDROCHLORIDE
  4. FLECTOR                            /00372302/ [Concomitant]
     Active Substance: DICLOFENAC SODIUM
  5. FLUCONAZOLE. [Concomitant]
     Active Substance: FLUCONAZOLE
  6. FLONASE                            /00908302/ [Concomitant]
     Active Substance: MOMETASONE FUROATE
  7. PHENOBARBITAL. [Concomitant]
     Active Substance: PHENOBARBITAL
  8. VITAMIN D                          /00107901/ [Concomitant]
     Active Substance: ERGOCALCIFEROL
  9. SYNTHROID [Concomitant]
     Active Substance: LEVOTHYROXINE SODIUM
  10. ADVAIR HFA [Concomitant]
     Active Substance: FLUTICASONE PROPIONATE\SALMETEROL XINAFOATE
  11. HYALGAN [Concomitant]
     Active Substance: HYALURONATE SODIUM
  12. AZASITE [Concomitant]
     Active Substance: AZITHROMYCIN MONOHYDRATE
  13. FOLATE [Concomitant]
     Active Substance: FOLATE SODIUM
  14. OMEGA 3 FISH OILS [Concomitant]
     Active Substance: OMEGA-3 FATTY ACIDS
  15. ORPHENADRINE [Concomitant]
     Active Substance: ORPHENADRINE
  16. GABAPENTIN. [Concomitant]
     Active Substance: GABAPENTIN
  17. XYREM [Suspect]
     Active Substance: SODIUM OXYBATE
     Dosage: 2 G, BID
     Route: 048
     Dates: start: 201604
  18. PROPRANOLOL [Concomitant]
     Active Substance: PROPRANOLOL HYDROCHLORIDE
  19. NABUMETONE. [Concomitant]
     Active Substance: NABUMETONE
  20. LIPITOR [Concomitant]
     Active Substance: ATORVASTATIN CALCIUM
  21. HUMIRA [Concomitant]
     Active Substance: ADALIMUMAB
  22. PREVACID [Concomitant]
     Active Substance: LANSOPRAZOLE
  23. FAMOTIDINE. [Concomitant]
     Active Substance: FAMOTIDINE
  24. CYTOMEL [Concomitant]
     Active Substance: LIOTHYRONINE SODIUM
  25. RESTASIS [Concomitant]
     Active Substance: CYCLOSPORINE
  26. CALCIUM [Concomitant]
     Active Substance: CALCIUM
  27. CODEINE SULFATE. [Concomitant]
     Active Substance: CODEINE SULFATE
  28. LAMOTRIGINE. [Concomitant]
     Active Substance: LAMOTRIGINE
  29. LIDOCAINE. [Concomitant]
     Active Substance: LIDOCAINE
  30. PREVIDENT [Concomitant]
     Active Substance: SODIUM FLUORIDE
  31. VOLTAREN [Concomitant]
     Active Substance: DICLOFENAC SODIUM
  32. XYREM [Suspect]
     Active Substance: SODIUM OXYBATE
     Dosage: DOSE ADJUSTMENT
     Route: 048
     Dates: start: 201404, end: 2016
  33. DESONIDE. [Concomitant]
     Active Substance: DESONIDE
  34. LIOTHYRONINE SOD. [Concomitant]
  35. PROLIA [Concomitant]
     Active Substance: DENOSUMAB
  36. CHLORAL HYDRATE [Concomitant]
     Active Substance: CHLORAL HYDRATE
  37. AZITHROMYCIN ANHYDROUS. [Concomitant]
     Active Substance: AZITHROMYCIN ANHYDROUS
  38. ZOFRAN [Concomitant]
     Active Substance: ONDANSETRON HYDROCHLORIDE
  39. PROAIR HFA [Concomitant]
     Active Substance: ALBUTEROL SULFATE

REACTIONS (8)
  - Wrist fracture [Unknown]
  - Ligament rupture [Unknown]
  - Wound infection [Unknown]
  - Visual acuity reduced [Not Recovered/Not Resolved]
  - Joint injury [Unknown]
  - Essential tremor [Not Recovered/Not Resolved]
  - Road traffic accident [Unknown]
  - Muscle spasms [Unknown]
